FAERS Safety Report 26002594 (Version 1)
Quarter: 2025Q4

REPORT INFORMATION
  Report Type: Spontaneous
  Country: GB (occurrence: GB)
  Receive Date: 20251106
  Receipt Date: 20251106
  Transmission Date: 20260117
  Serious: Yes (Other)
  Sender: ALEXION PHARMACEUTICALS
  Company Number: GB-MHRA-TPP15624612C24878369YC1761726431544

PATIENT
  Age: 59 Year
  Sex: Male
  Weight: 102 kg

DRUGS (9)
  1. DAPAGLIFLOZIN [Suspect]
     Active Substance: DAPAGLIFLOZIN
     Dosage: 5 MILLIGRAM, QD
     Route: 065
     Dates: start: 20251009
  2. AMITRIPTYLINE HYDROCHLORIDE [Concomitant]
     Active Substance: AMITRIPTYLINE HYDROCHLORIDE
     Indication: Ill-defined disorder
     Dosage: TAKE ONE EACH NIGHT
     Route: 065
  3. FLUTICASONE PROPIONATE [Concomitant]
     Active Substance: FLUTICASONE PROPIONATE
     Indication: Ill-defined disorder
     Dosage: TWO SPRAYS TO BE USED IN EACH NOSTRIL ONCE A DAY
     Route: 065
  4. BUDESONIDE\FORMOTEROL FUMARATE [Concomitant]
     Active Substance: BUDESONIDE\FORMOTEROL FUMARATE
     Indication: Ill-defined disorder
     Dosage: INHALE TWO DOSES TWICE DAILY - ADDITIONAL DOSE ...
     Route: 065
  5. LANSOPRAZOLE [Concomitant]
     Active Substance: LANSOPRAZOLE
     Indication: Ill-defined disorder
     Dosage: ONE EACH MORNING BEFORE FOOD.
     Route: 065
  6. NAPROXEN [Concomitant]
     Active Substance: NAPROXEN
     Indication: Ill-defined disorder
     Dosage: ONE TWICE DAILY  IF NEEDED  FOR JOINT PAIN
     Route: 065
  7. RAMIPRIL [Concomitant]
     Active Substance: RAMIPRIL
     Indication: Ill-defined disorder
     Dosage: ONE DAILY
     Route: 065
  8. TAMSULOSIN HYDROCHLORIDE [Concomitant]
     Active Substance: TAMSULOSIN HYDROCHLORIDE
     Indication: Ill-defined disorder
     Dosage: TAKE ONE DAILY
     Route: 065
  9. Yaltormin sr [Concomitant]
     Indication: Ill-defined disorder
     Dosage: TAKE ONE TABLET THREE TIMES A DAY
     Route: 065

REACTIONS (6)
  - Dysuria [Unknown]
  - Back pain [Unknown]
  - Arthralgia [Unknown]
  - Dysgeusia [Unknown]
  - Abdominal pain [Recovering/Resolving]
  - Testicular swelling [Recovered/Resolved]

NARRATIVE: CASE EVENT DATE: 20251029
